FAERS Safety Report 7446801-7 (Version None)
Quarter: 2011Q2

REPORT INFORMATION
  Report Type: 
  Country: None (occurrence: None)
  Receive Date: 20110429
  Receipt Date: 20101013
  Transmission Date: 20111010
  Serious: No
  Sender: FDA-Public Use
  Company Number: US-ASTRAZENECA-2010SE48620

PATIENT
  Sex: Male

DRUGS (2)
  1. SEROQUEL XR [Suspect]
     Route: 048
  2. NEXIUM [Suspect]
     Route: 048

REACTIONS (6)
  - ANXIETY [None]
  - NERVOUS SYSTEM DISORDER [None]
  - NIGHTMARE [None]
  - ABDOMINAL DISCOMFORT [None]
  - INSOMNIA [None]
  - HYPERHIDROSIS [None]
